FAERS Safety Report 4512343-1 (Version None)
Quarter: 2004Q4

REPORT INFORMATION
  Report Type: 
  Country: None (occurrence: None)
  Receive Date: 20041129
  Receipt Date: 20041117
  Transmission Date: 20050328
  Serious: Yes (Other)
  Sender: FDA-Public Use
  Company Number: 385862

PATIENT
  Age: 56 Year
  Sex: Male

DRUGS (4)
  1. DILATREND [Suspect]
     Indication: CARDIAC FAILURE CONGESTIVE
     Dosage: 6.25MG UNKNOWN
     Route: 048
  2. ACCUPRON [Concomitant]
     Indication: ILL-DEFINED DISORDER
     Route: 065
  3. LIPITOR [Concomitant]
     Indication: ILL-DEFINED DISORDER
  4. SALOSPIR [Concomitant]
     Indication: ILL-DEFINED DISORDER

REACTIONS (1)
  - PENILE DISCHARGE [None]
